FAERS Safety Report 15939465 (Version 2)
Quarter: 2019Q1

REPORT INFORMATION
  Report Type: Spontaneous
  Country: DE (occurrence: DE)
  Receive Date: 20190208
  Receipt Date: 20190322
  Transmission Date: 20190417
  Serious: Yes (Hospitalization)
  Sender: FDA-Public Use
  Company Number: DE-SA-2019SA022999

PATIENT
  Age: 45 Year
  Sex: Female

DRUGS (4)
  1. OPIPRAMOL [Concomitant]
     Active Substance: OPIPRAMOL
     Indication: ADJUSTMENT DISORDER
     Dosage: UNK UNK, QD
     Route: 048
     Dates: start: 20170406
  2. ACICLOVIR [Concomitant]
     Active Substance: ACYCLOVIR
     Dosage: UNK, BID
     Route: 048
  3. DESLORATADINE. [Concomitant]
     Active Substance: DESLORATADINE
     Dosage: UNK, QD
     Route: 048
     Dates: start: 20190120, end: 20190130
  4. LEMTRADA [Suspect]
     Active Substance: ALEMTUZUMAB
     Indication: MULTIPLE SCLEROSIS
     Dosage: 12 MG, QD
     Route: 041
     Dates: start: 20190121, end: 20190123

REACTIONS (3)
  - Liver function test increased [Recovered/Resolved]
  - Abdominal pain upper [Recovered/Resolved]
  - Blood pressure increased [Recovered/Resolved]

NARRATIVE: CASE EVENT DATE: 20190122
